FAERS Safety Report 6792767-2 (Version None)
Quarter: 2010Q2

REPORT INFORMATION
  Report Type: 
  Country: None (occurrence: None)
  Receive Date: 20100624
  Receipt Date: 20080922
  Transmission Date: 20101027
  Serious: No
  Sender: FDA-Public Use
  Company Number: US-PFIZER INC-2008080479

PATIENT
  Sex: Female
  Weight: 100 kg

DRUGS (4)
  1. MEDROXYPROGESTERONE ACETATE [Suspect]
     Indication: CONTRACEPTION
     Dosage: 1 EVERY 14 WEEKS
     Route: 030
  2. MEDROXYPROGESTERONE ACETATE [Suspect]
     Indication: PELVIC PAIN
  3. DEPO-PROVERA SUSPENSION/INJ [Suspect]
     Indication: CONTRACEPTION
     Dosage: 1 EVERY 14 WEEKS
     Route: 030
  4. DEPO-PROVERA SUSPENSION/INJ [Suspect]
     Indication: PELVIC PAIN

REACTIONS (3)
  - DRUG EFFECT DECREASED [None]
  - INAPPROPRIATE SCHEDULE OF DRUG ADMINISTRATION [None]
  - INCORRECT DOSE ADMINISTERED [None]
